FAERS Safety Report 8220399-8 (Version None)
Quarter: 2012Q1

REPORT INFORMATION
  Report Type: 
  Country: None (occurrence: None)
  Receive Date: 20120316
  Receipt Date: 20120229
  Transmission Date: 20120608
  Serious: Yes (Other)
  Sender: FDA-Public Use
  Company Number: DSA_55642_2012

PATIENT
  Age: 69 Year
  Sex: Female

DRUGS (1)
  1. BENZAMYCIN [Suspect]
     Indication: ACNE
     Dosage: (1 DF 1X CUTANEOUS
     Route: 003
     Dates: start: 20120209, end: 20120209

REACTIONS (3)
  - ROSACEA [None]
  - THERMAL BURN [None]
  - ERYTHEMA [None]
